FAERS Safety Report 14342121 (Version 2)
Quarter: 2018Q1

REPORT INFORMATION
  Report Type: Spontaneous
  Country: BR (occurrence: BR)
  Receive Date: 20180102
  Receipt Date: 20180129
  Transmission Date: 20180509
  Serious: Yes (Other)
  Sender: FDA-Public Use
  Company Number: BR-GLAXOSMITHKLINE-BR2017GSK201389

PATIENT
  Sex: Female
  Weight: 48 kg

DRUGS (2)
  1. DECONGEX [Concomitant]
     Indication: HYPERSENSITIVITY
     Dosage: UNK
  2. SERETIDE [Suspect]
     Active Substance: FLUTICASONE PROPIONATE\SALMETEROL XINAFOATE
     Indication: ASTHMA
     Dosage: UNK
     Route: 048

REACTIONS (4)
  - Overdose [Unknown]
  - Asthmatic crisis [Unknown]
  - Wrong technique in product usage process [Unknown]
  - Product quality issue [Unknown]
